FAERS Safety Report 6187180-5 (Version None)
Quarter: 2009Q2

REPORT INFORMATION
  Report Type: 
  Country: None (occurrence: None)
  Receive Date: 20090512
  Receipt Date: 20090504
  Transmission Date: 20091009
  Serious: Yes (Hospitalization)
  Sender: FDA-Public Use
  Company Number: FR-BAYER-200920174GPV

PATIENT
  Age: 76 Year
  Sex: Male

DRUGS (6)
  1. FLUDARA [Suspect]
     Indication: CHRONIC LYMPHOCYTIC LEUKAEMIA
     Route: 042
     Dates: start: 20090201, end: 20090315
  2. ENDOXAN [Suspect]
     Indication: CHRONIC LYMPHOCYTIC LEUKAEMIA
     Route: 042
     Dates: start: 20090201, end: 20090315
  3. MABTHERA [Suspect]
     Indication: CHRONIC LYMPHOCYTIC LEUKAEMIA
     Route: 042
     Dates: start: 20090110, end: 20090315
  4. BACTRIM [Concomitant]
     Dates: start: 20090116
  5. VALACYCLOVIR HCL [Concomitant]
     Dates: start: 20090116
  6. ONDANSETRON HCL [Concomitant]

REACTIONS (2)
  - SKIN HYPERPIGMENTATION [None]
  - TOXIC SKIN ERUPTION [None]
